FAERS Safety Report 20490412 (Version 14)
Quarter: 2025Q3

REPORT INFORMATION
  Report Type: Report from Study
  Country: CA (occurrence: CA)
  Receive Date: 20220218
  Receipt Date: 20250827
  Transmission Date: 20251021
  Serious: Yes (Other)
  Sender: TAKEDA
  Company Number: CA-TAKEDA-2021TUS034993

PATIENT
  Sex: Female

DRUGS (13)
  1. VEDOLIZUMAB [Suspect]
     Active Substance: VEDOLIZUMAB
     Indication: Colitis ulcerative
  2. VEDOLIZUMAB [Suspect]
     Active Substance: VEDOLIZUMAB
  3. VEDOLIZUMAB [Suspect]
     Active Substance: VEDOLIZUMAB
  4. VEDOLIZUMAB [Suspect]
     Active Substance: VEDOLIZUMAB
  5. VEDOLIZUMAB [Suspect]
     Active Substance: VEDOLIZUMAB
  6. VEDOLIZUMAB [Suspect]
     Active Substance: VEDOLIZUMAB
  7. VEDOLIZUMAB [Suspect]
     Active Substance: VEDOLIZUMAB
  8. VEDOLIZUMAB [Suspect]
     Active Substance: VEDOLIZUMAB
  9. VEDOLIZUMAB [Suspect]
     Active Substance: VEDOLIZUMAB
  10. VEDOLIZUMAB [Suspect]
     Active Substance: VEDOLIZUMAB
  11. VEDOLIZUMAB [Suspect]
     Active Substance: VEDOLIZUMAB
  12. PURINETHOL [Concomitant]
     Active Substance: MERCAPTOPURINE
  13. Cortiment [Concomitant]

REACTIONS (23)
  - Colitis ulcerative [Unknown]
  - Abdominal discomfort [Unknown]
  - Pharyngeal paraesthesia [Recovered/Resolved]
  - Frequent bowel movements [Not Recovered/Not Resolved]
  - Abdominal pain upper [Unknown]
  - Stress [Unknown]
  - Anxiety [Not Recovered/Not Resolved]
  - Proctalgia [Unknown]
  - Myalgia [Unknown]
  - Malaise [Unknown]
  - Dyspnoea [Unknown]
  - Rhinorrhoea [Unknown]
  - Abdominal pain [Unknown]
  - Feeling cold [Unknown]
  - Haemorrhoids [Unknown]
  - Gastroenteritis [Not Recovered/Not Resolved]
  - Nasal congestion [Unknown]
  - Oropharyngeal pain [Unknown]
  - Cough [Recovering/Resolving]
  - Fatigue [Unknown]
  - Headache [Unknown]
  - Influenza [Recovering/Resolving]
  - Pyrexia [Unknown]
